FAERS Safety Report 19379777 (Version 1)
Quarter: 2021Q2

REPORT INFORMATION
  Report Type: Spontaneous
  Country: US (occurrence: US)
  Receive Date: 20210607
  Receipt Date: 20210607
  Transmission Date: 20210717
  Serious: No
  Sender: FDA-Public Use
  Company Number: US-TEVA-2021-US-1915982

PATIENT
  Age: 57 Year
  Sex: Female

DRUGS (1)
  1. AUSTEDO [Suspect]
     Active Substance: DEUTETRABENAZINE
     Indication: TARDIVE DYSKINESIA
     Dosage: 12 MILLIGRAM DAILY; THEN TITRATED UP TO 9 MG, BID
     Route: 065
     Dates: start: 202104, end: 202105

REACTIONS (2)
  - Urinary incontinence [Unknown]
  - Parkinsonism [Unknown]

NARRATIVE: CASE EVENT DATE: 2021
